FAERS Safety Report 11289758 (Version 5)
Quarter: 2017Q1

REPORT INFORMATION
  Report Type: Spontaneous
  Country: DK (occurrence: DK)
  Receive Date: 20150721
  Receipt Date: 20170308
  Transmission Date: 20170428
  Serious: Yes (Death, Hospitalization)
  Sender: FDA-Public Use
  Company Number: DK-UNITED THERAPEUTICS-UNT-2015-008628

PATIENT
  Age: 27 Year
  Sex: Female

DRUGS (4)
  1. REMODULIN [Suspect]
     Active Substance: TREPROSTINIL
     Indication: PULMONARY HYPERTENSION
     Dosage: UNK UNK, CONTINUING
     Route: 058
     Dates: start: 20150319, end: 20150715
  2. SILDENAFIL. [Concomitant]
     Active Substance: SILDENAFIL
     Indication: PRODUCT USED FOR UNKNOWN INDICATION
     Dosage: UNK
     Dates: start: 20150319
  3. ADALAT [Concomitant]
     Active Substance: NIFEDIPINE
     Indication: PRODUCT USED FOR UNKNOWN INDICATION
     Dosage: UNK
     Dates: start: 20150319
  4. REMODULIN [Suspect]
     Active Substance: TREPROSTINIL
     Dosage: 0.015 ?G/KG, CONTINUING
     Route: 058
     Dates: start: 20150527, end: 20150708

REACTIONS (3)
  - Cerebral haemorrhage [Not Recovered/Not Resolved]
  - Right ventricular failure [Fatal]
  - Pulmonary arterial hypertension [Unknown]

NARRATIVE: CASE EVENT DATE: 2015
